FAERS Safety Report 6801929-7 (Version None)
Quarter: 2010Q2

REPORT INFORMATION
  Report Type: 
  Country: None (occurrence: None)
  Receive Date: 20100629
  Receipt Date: 20100623
  Transmission Date: 20101027
  Serious: No
  Sender: FDA-Public Use
  Company Number: CHNY2010JP00467

PATIENT
  Age: 51 Year
  Sex: Male

DRUGS (2)
  1. NICOTINELL TTS (NCH) [Suspect]
     Indication: SMOKING CESSATION THERAPY
     Dosage: 21 MG, QD
     Route: 062
     Dates: start: 20070523, end: 20070619
  2. NICOTINELL TTS (NCH) [Suspect]
     Indication: NICOTINE DEPENDENCE
     Dosage: 14 MG, QD
     Route: 062
     Dates: start: 20070620, end: 20070703

REACTIONS (4)
  - APPLICATION SITE ERYTHEMA [None]
  - DERMATITIS CONTACT [None]
  - PRURITUS [None]
  - SKIN DISORDER [None]
